FAERS Safety Report 24084844 (Version 1)
Quarter: 2024Q3

REPORT INFORMATION
  Report Type: Spontaneous
  Country: GB (occurrence: GB)
  Receive Date: 20240712
  Receipt Date: 20240712
  Transmission Date: 20241016
  Serious: Yes (Other)
  Sender: MERCK
  Company Number: None

PATIENT
  Age: 61 Year
  Sex: Female
  Weight: 79 kg

DRUGS (5)
  1. MOLNUPIRAVIR [Suspect]
     Active Substance: MOLNUPIRAVIR
     Dosage: UNK
     Route: 048
  2. PROPRANOLOL [Concomitant]
     Active Substance: PROPRANOLOL HYDROCHLORIDE
     Indication: Psychiatric care
  3. VRAYLAR [Concomitant]
     Active Substance: CARIPRAZINE
     Indication: Psychiatric care
     Dosage: UNK
  4. MODAFINIL [Concomitant]
     Active Substance: MODAFINIL
     Indication: Psychiatric care
  5. LAMOTRIGINE [Concomitant]
     Active Substance: LAMOTRIGINE
     Indication: Psychiatric care

REACTIONS (1)
  - Rash erythematous [Not Recovered/Not Resolved]

NARRATIVE: CASE EVENT DATE: 20240705
